FAERS Safety Report 5414261-3 (Version None)
Quarter: 2007Q3

REPORT INFORMATION
  Report Type: 
  Country: None (occurrence: None)
  Receive Date: 20070713
  Receipt Date: 20070503
  Transmission Date: 20080115
  Serious: Yes (Hospitalization)
  Sender: FDA-Public Use
  Company Number: US-JNJFOC-20070204468

PATIENT
  Age: 24 Year
  Sex: Female
  Weight: 124.7392 kg

DRUGS (2)
  1. ORTHO EVRA [Suspect]
     Indication: DRUG USE FOR UNKNOWN INDICATION
     Dosage: TRANSDERMAL
     Route: 062
     Dates: start: 20021101, end: 20021201
  2. ULTRACET (OPIOIDS) [Concomitant]

REACTIONS (2)
  - EMBOLISM [None]
  - PHARMACEUTICAL PRODUCT COMPLAINT [None]
